FAERS Safety Report 26012006 (Version 2)
Quarter: 2025Q4

REPORT INFORMATION
  Report Type: Spontaneous
  Country: JP (occurrence: JP)
  Receive Date: 20251107
  Receipt Date: 20251113
  Transmission Date: 20260118
  Serious: No
  Sender: BAYER HEALTHCARE PHARMACEUTICALS INC.
  Company Number: JP-BAYER-2025A143952

PATIENT
  Age: 77 Year
  Sex: Male

DRUGS (1)
  1. NUBEQA [Suspect]
     Active Substance: DAROLUTAMIDE
     Indication: Prostate cancer
     Dosage: 1200MG/DAY
     Dates: start: 20251024

REACTIONS (1)
  - Urine abnormality [Not Recovered/Not Resolved]

NARRATIVE: CASE EVENT DATE: 20251031
